FAERS Safety Report 25264041 (Version 1)
Quarter: 2025Q2

REPORT INFORMATION
  Report Type: Spontaneous
  Country: US (occurrence: None)
  Receive Date: 20250502
  Receipt Date: 20250502
  Transmission Date: 20250716
  Serious: Yes (Disabling)
  Sender: FDA-CTU
  Company Number: None

PATIENT
  Age: 40 Year
  Sex: Female
  Weight: 57.6 kg

DRUGS (1)
  1. HUMIRA [Suspect]
     Active Substance: ADALIMUMAB
     Indication: Colitis ulcerative
     Dates: start: 20240901, end: 20250201

REACTIONS (9)
  - Systemic inflammatory response syndrome [None]
  - Psoriasis [None]
  - Joint swelling [None]
  - Arthralgia [None]
  - Joint stiffness [None]
  - Fatigue [None]
  - Muscular weakness [None]
  - Dermatitis psoriasiform [None]
  - Therapy cessation [None]

NARRATIVE: CASE EVENT DATE: 20241101
